FAERS Safety Report 15192752 (Version 1)
Quarter: 2018Q3

REPORT INFORMATION
  Report Type: Spontaneous
  Country: CA (occurrence: CA)
  Receive Date: 20180725
  Receipt Date: 20180725
  Transmission Date: 20181010
  Serious: Yes (Other)
  Sender: FDA-Public Use
  Company Number: CA-HLSUS-2018-CA-001106

PATIENT
  Sex: Male

DRUGS (2)
  1. CLOZARIL [Suspect]
     Active Substance: CLOZAPINE
     Indication: SCHIZOPHRENIA
     Dosage: 600MG
     Route: 048
     Dates: start: 201709
  2. REXULTI [Suspect]
     Active Substance: BREXPIPRAZOLE
     Dosage: 4MG DAILY
     Dates: start: 201804

REACTIONS (6)
  - Intrusive thoughts [Unknown]
  - Apathy [Not Recovered/Not Resolved]
  - Asthenia [Not Recovered/Not Resolved]
  - Psychotic disorder [Unknown]
  - Adverse drug reaction [Unknown]
  - Depressed mood [Not Recovered/Not Resolved]
